FAERS Safety Report 7534989-9 (Version None)
Quarter: 2011Q2

REPORT INFORMATION
  Report Type: 
  Country: None (occurrence: None)
  Receive Date: 20110609
  Receipt Date: 20090209
  Transmission Date: 20111010
  Serious: Yes (Hospitalization)
  Sender: FDA-Public Use
  Company Number: PHHY2008GB18539

PATIENT
  Sex: Male

DRUGS (3)
  1. CLOZAPINE [Suspect]
     Dosage: 12.5 MG, UNK
     Dates: start: 20080813
  2. CLOZAPINE [Suspect]
     Dosage: 25 MG, UNK
  3. CLOZAPINE [Suspect]
     Indication: SCHIZOPHRENIA
     Dates: start: 20070822, end: 20080801

REACTIONS (7)
  - BODY TEMPERATURE INCREASED [None]
  - INFLAMMATION [None]
  - OEDEMA [None]
  - ABNORMAL BEHAVIOUR [None]
  - FEELING HOT [None]
  - TACHYCARDIA [None]
  - TENDERNESS [None]
